FAERS Safety Report 5330812-1 (Version None)
Quarter: 2007Q1

REPORT INFORMATION
  Report Type: 
  Country: None (occurrence: None)
  Receive Date: 20070227
  Receipt Date: 20060804
  Transmission Date: 20070707
  Serious: Yes (Other)
  Sender: FDA-Public Use
  Company Number: 458424

PATIENT
  Sex: Male
  Weight: 93.4 kg

DRUGS (1)
  1. ACCUTANE [Suspect]
     Indication: ACNE
     Dates: start: 20000415, end: 20000515

REACTIONS (2)
  - COLITIS ULCERATIVE [None]
  - DEPRESSED MOOD [None]
